FAERS Safety Report 9431861 (Version 2)
Quarter: 2013Q3

REPORT INFORMATION
  Report Type: Spontaneous
  Country: AU (occurrence: AU)
  Receive Date: 20130731
  Receipt Date: 20130805
  Transmission Date: 20140515
  Serious: Yes (Hospitalization, Other)
  Sender: FDA-Public Use
  Company Number: PHHY2013AU078976

PATIENT
  Sex: Male

DRUGS (21)
  1. ACLASTA [Suspect]
     Dosage: 5 MG
     Route: 042
     Dates: start: 20120719
  2. VOLTAREN [Suspect]
     Dosage: 100 MG, EVERY 2ND DAY
  3. LYRICA [Concomitant]
     Dosage: 150 MG, BID
  4. LYRICA [Concomitant]
     Dosage: 75 MG, BID
  5. ENBREL [Concomitant]
     Dosage: UNK
  6. METHOTREXAT [Concomitant]
     Dosage: 20 MG, WEEKLY
  7. NOTEN [Concomitant]
     Dosage: UNK DAILY
  8. COVERSYL [Concomitant]
     Dosage: 10 MG
  9. NEXIUM [Concomitant]
     Dosage: 20 MG, BID
  10. FISH OIL [Concomitant]
     Dosage: 1000 MG, BID
  11. HERRON HL026 HORSERADISH AND GARLIC PLUS [Concomitant]
     Dosage: UNK, 6 DAILY
  12. OSTELIN [Concomitant]
     Dosage: UNK
  13. FOLIC ACID [Concomitant]
     Dosage: 5 MG, ONCE WEEKLY
  14. DIGESIC [Concomitant]
     Dosage: 6 DAILY
  15. PLAVIX [Concomitant]
     Dosage: 75 MG, QD
  16. KEFLEX [Concomitant]
     Dosage: UNK
  17. ENDONE [Concomitant]
     Dosage: UNK, 2 DAILY
  18. OXYCONTIN [Concomitant]
     Dosage: 10 MG, 2 DAILY
  19. WARFARIN [Concomitant]
     Dosage: UNK
  20. ASPIRIN [Concomitant]
     Dosage: UNK
  21. FENTANYL [Concomitant]
     Indication: PAIN

REACTIONS (5)
  - Rash [Recovered/Resolved]
  - Rash macular [Recovered/Resolved]
  - Rash pruritic [Recovered/Resolved]
  - Renal haemorrhage [Unknown]
  - Back disorder [Unknown]
